FAERS Safety Report 7813063-8 (Version None)
Quarter: 2011Q4

REPORT INFORMATION
  Report Type: 
  Country: None (occurrence: None)
  Receive Date: 20111013
  Receipt Date: 20111003
  Transmission Date: 20120403
  Serious: Yes (Other)
  Sender: FDA-Public Use
  Company Number: PHHY2011US29913

PATIENT
  Sex: Female

DRUGS (8)
  1. ZILACTIN [Concomitant]
  2. GLEEVEC [Suspect]
     Dosage: 300 MG, DAILY
     Route: 048
     Dates: end: 20110512
  3. ASPIRIN [Concomitant]
     Route: 048
  4. GLEEVEC [Suspect]
     Indication: GASTROINTESTINAL STROMAL TUMOUR
     Dosage: 400 MG, DAILY
     Route: 048
     Dates: start: 20110316
  5. GLEEVEC [Suspect]
     Indication: MALIGNANT SOFT TISSUE NEOPLASM
     Dosage: 100 MG, DAILY
     Route: 048
     Dates: start: 20110408
  6. GLEEVEC [Suspect]
     Dosage: 300 MG, DAILY
     Route: 048
     Dates: end: 20110504
  7. LEVOXYL [Concomitant]
     Route: 048
  8. MEVACOR [Concomitant]
     Route: 048

REACTIONS (11)
  - BENIGN NEOPLASM OF THYROID GLAND [None]
  - DIARRHOEA [None]
  - RASH [None]
  - RETCHING [None]
  - WEIGHT DECREASED [None]
  - OEDEMA [None]
  - PANCREATIC DISORDER [None]
  - ANAEMIA [None]
  - THROMBOCYTOSIS [None]
  - OEDEMA PERIPHERAL [None]
  - NAUSEA [None]
